FAERS Safety Report 16423042 (Version 2)
Quarter: 2020Q2

REPORT INFORMATION
  Report Type: Report from Study
  Country: US (occurrence: US)
  Receive Date: 20190612
  Receipt Date: 20200505
  Transmission Date: 20200713
  Serious: No
  Sender: FDA-Public Use
  Company Number: PHEH2019US024502

PATIENT
  Sex: Female

DRUGS (1)
  1. MEKINIST [Suspect]
     Active Substance: TRAMETINIB DIMETHYL SULFOXIDE
     Indication: PRODUCT USED FOR UNKNOWN INDICATION
     Route: 065

REACTIONS (3)
  - Ocular discomfort [Unknown]
  - Reading disorder [Unknown]
  - Visual impairment [Unknown]
